FAERS Safety Report 17594888 (Version 1)
Quarter: 2020Q1

REPORT INFORMATION
  Report Type: Spontaneous
  Country: US (occurrence: US)
  Receive Date: 20200328
  Receipt Date: 20200328
  Transmission Date: 20200409
  Serious: Yes (Hospitalization)
  Sender: FDA-Public Use
  Company Number: NVSC2020US085539

PATIENT
  Age: 10 Year
  Sex: Male

DRUGS (2)
  1. IMATINIB. [Suspect]
     Active Substance: IMATINIB MESYLATE
     Indication: PRODUCT USED FOR UNKNOWN INDICATION
     Dosage: UNK
     Route: 065
  2. JAKAFI [Suspect]
     Active Substance: RUXOLITINIB
     Indication: PRODUCT USED FOR UNKNOWN INDICATION
     Dosage: 15 MG, BID (10MG QAM AND 5MG QPM)
     Route: 048
     Dates: start: 201905

REACTIONS (3)
  - Product use issue [Unknown]
  - Blood count abnormal [Recovering/Resolving]
  - Off label use [Unknown]

NARRATIVE: CASE EVENT DATE: 201905
